FAERS Safety Report 13616010 (Version 1)
Quarter: 2017Q2

REPORT INFORMATION
  Report Type: Spontaneous
  Country: US (occurrence: US)
  Receive Date: 20170606
  Receipt Date: 20170606
  Transmission Date: 20170830
  Serious: Yes (Other)
  Sender: FDA-Public Use
  Company Number: US-PROCTER_AND_GAMBLE-GS17059611

PATIENT
  Age: 11 Month
  Sex: Male

DRUGS (1)
  1. PEPTO-BISMOL NOS [Suspect]
     Active Substance: BISMUTH SUBSALICYLATE OR CALCIUM CARBONATE
     Route: 048

REACTIONS (6)
  - Seizure [Unknown]
  - Crying [Recovered/Resolved]
  - Tongue discolouration [Recovered/Resolved]
  - Restlessness [Unknown]
  - Irritability [Recovered/Resolved]
  - Drug administered to patient of inappropriate age [Unknown]
